FAERS Safety Report 11272996 (Version 1)
Quarter: 2015Q3

REPORT INFORMATION
  Report Type: Spontaneous
  Country: GB (occurrence: GB)
  Receive Date: 20150715
  Receipt Date: 20150715
  Transmission Date: 20151125
  Serious: Yes (Hospitalization)
  Sender: FDA-Public Use
  Company Number: GB-AMGEN-GBRSP2015070258

PATIENT
  Age: 60 Year
  Sex: Female

DRUGS (1)
  1. ARANESP [Suspect]
     Active Substance: DARBEPOETIN ALFA
     Indication: PRODUCT USED FOR UNKNOWN INDICATION
     Dosage: 50 MUG, Q2WK, ANG
     Route: 065

REACTIONS (1)
  - Hospitalisation [Recovered/Resolved]
